FAERS Safety Report 7201617-1 (Version None)
Quarter: 2010Q4

REPORT INFORMATION
  Report Type: 
  Country: None (occurrence: None)
  Receive Date: 20101229
  Receipt Date: 20101222
  Transmission Date: 20110411
  Serious: Yes (Hospitalization)
  Sender: FDA-Public Use
  Company Number: IT-BAXTER-2010BH026655

PATIENT
  Age: 8 Year
  Sex: Male

DRUGS (1)
  1. GAMMAGARD S/D [Suspect]
     Indication: PLATELET DISORDER
     Route: 042
     Dates: start: 20101018, end: 20101019

REACTIONS (4)
  - ABDOMINAL PAIN [None]
  - AGITATION [None]
  - TREMOR [None]
  - VOMITING [None]
